FAERS Safety Report 7701957-3 (Version None)
Quarter: 2011Q3

REPORT INFORMATION
  Report Type: 
  Country: None (occurrence: None)
  Receive Date: 20110822
  Receipt Date: 20110809
  Transmission Date: 20111222
  Serious: Yes (Other)
  Sender: FDA-Public Use
  Company Number: PHHY2011JP71725

PATIENT
  Age: 65 Year
  Sex: Male

DRUGS (1)
  1. SANDOSTATIN [Suspect]
     Indication: RETROPERITONEAL ABSCESS
     Dosage: 300 UG, UNK
     Route: 058
     Dates: start: 20110803, end: 20110803

REACTIONS (9)
  - C-REACTIVE PROTEIN INCREASED [None]
  - PYREXIA [None]
  - BLOOD BILIRUBIN INCREASED [None]
  - BLOOD AMYLASE INCREASED [None]
  - SEPSIS [None]
  - ALANINE AMINOTRANSFERASE INCREASED [None]
  - ESCHERICHIA INFECTION [None]
  - CHOLECYSTITIS [None]
  - ASPARTATE AMINOTRANSFERASE INCREASED [None]
